FAERS Safety Report 7002229-5 (Version None)
Quarter: 2010Q3

REPORT INFORMATION
  Report Type: 
  Country: None (occurrence: None)
  Receive Date: 20100917
  Receipt Date: 20100917
  Transmission Date: 20110219
  Serious: No
  Sender: FDA-Public Use
  Company Number: None

PATIENT
  Sex: Female
  Weight: 58.0604 kg

DRUGS (1)
  1. LAMISIL [Suspect]
     Indication: ONYCHOMYCOSIS
     Dosage: 250 MG ONCE DAILY
     Dates: start: 20100720, end: 20100815

REACTIONS (4)
  - AGEUSIA [None]
  - DRY MOUTH [None]
  - DYSGEUSIA [None]
  - RASH [None]
